FAERS Safety Report 5787777-8 (Version None)
Quarter: 2008Q2

REPORT INFORMATION
  Report Type: 
  Country: None (occurrence: None)
  Receive Date: 20080625
  Receipt Date: 20080611
  Transmission Date: 20081010
  Serious: Yes (Hospitalization)
  Sender: FDA-Public Use
  Company Number: PHHY2008GB11085

PATIENT
  Age: 38 Year
  Sex: Male

DRUGS (1)
  1. DICLOFENAC SODIUM [Suspect]
     Indication: COSTOCHONDRITIS
     Dosage: 50 MG/DAY
     Route: 048
     Dates: start: 20080117, end: 20080123

REACTIONS (1)
  - COLITIS ULCERATIVE [None]
